FAERS Safety Report 9551430 (Version 1)
Quarter: 2013Q3

REPORT INFORMATION
  Report Type: Spontaneous
  Country: US (occurrence: None)
  Receive Date: 20130923
  Receipt Date: 20130923
  Transmission Date: 20140515
  Serious: Yes (Hospitalization)
  Sender: FDA-Public Use
  Company Number: None

PATIENT
  Age: 63 Year
  Sex: Male
  Weight: 82.4 kg

DRUGS (2)
  1. CAPECITABINE [Suspect]
     Indication: ADENOCARCINOMA OF APPENDIX
     Route: 048
     Dates: start: 20111209, end: 20111222
  2. OXALIPLATIN [Suspect]
     Indication: ADENOCARCINOMA OF APPENDIX
     Route: 042
     Dates: start: 20111209, end: 20111209

REACTIONS (3)
  - Diarrhoea [None]
  - Abdominal distension [None]
  - Palmar-plantar erythrodysaesthesia syndrome [None]
